FAERS Safety Report 22356185 (Version 1)
Quarter: 2023Q2

REPORT INFORMATION
  Report Type: Spontaneous
  Country: DE (occurrence: DE)
  Receive Date: 20230523
  Receipt Date: 20230523
  Transmission Date: 20230721
  Serious: Yes (Other)
  Sender: FDA-Public Use
  Company Number: DE-002147023-NVSC2023DE111900

PATIENT
  Age: 70 Year
  Sex: Female

DRUGS (2)
  1. PREDNISOLONE [Suspect]
     Active Substance: PREDNISOLONE
     Indication: Von Willebrand^s disease
     Dosage: UNK, UNKNOWN, READMINISTRATION AFTER 6 MONTHS
     Route: 065
  2. RITUXIMAB [Suspect]
     Active Substance: RITUXIMAB
     Indication: Von Willebrand^s disease
     Dosage: 100 MG, TID
     Route: 065

REACTIONS (2)
  - Hyperglycaemia [Unknown]
  - Drug ineffective for unapproved indication [Unknown]
